FAERS Safety Report 9639667 (Version 4)
Quarter: 2014Q1

REPORT INFORMATION
  Report Type: Spontaneous
  Country: IT (occurrence: IT)
  Receive Date: 20131023
  Receipt Date: 20140117
  Transmission Date: 20141002
  Serious: Yes (Other)
  Sender: FDA-Public Use
  Company Number: IT-RANBAXY-2013RR-74281

PATIENT
  Age: 52 Year
  Sex: Female

DRUGS (4)
  1. NIMESULIDE [Suspect]
     Indication: TOOTH ABSCESS
     Dosage: 1 DF, PRN
     Route: 048
     Dates: start: 20130923, end: 20130926
  2. AMOXICILLIN/CLAVULANIC ACID [Suspect]
     Indication: TOOTH ABSCESS
     Dosage: 2 G/DAY
     Route: 048
     Dates: start: 20130923, end: 20130926
  3. DICLOFENAC [Suspect]
     Indication: TOOTH ABSCESS
     Dosage: 1 DF, PRN
     Route: 048
     Dates: start: 20130923, end: 20130926
  4. OKI [Suspect]
     Indication: TOOTH ABSCESS
     Dosage: 1 DF, PRN
     Route: 048
     Dates: start: 20130923, end: 20130926

REACTIONS (2)
  - Angioedema [Recovering/Resolving]
  - Urticaria [Recovering/Resolving]
